FAERS Safety Report 12277630 (Version 1)
Quarter: 2016Q2

REPORT INFORMATION
  Report Type: Spontaneous
  Country: GB (occurrence: GB)
  Receive Date: 20160418
  Receipt Date: 20160418
  Transmission Date: 20160815
  Serious: Yes (Disabling)
  Sender: FDA-Public Use
  Company Number: GB-B. BRAUN MEDICAL INC.-1050660

PATIENT
  Age: 36 Year
  Sex: Male
  Weight: 71 kg

DRUGS (3)
  1. METRONIDAZOLE. [Suspect]
     Active Substance: METRONIDAZOLE
     Dates: start: 20160323
  2. NICOTINE. [Concomitant]
     Active Substance: NICOTINE
     Dates: start: 20160211, end: 20160218
  3. NIQUITIN [Concomitant]
     Active Substance: NICOTINE
     Dates: start: 20160115, end: 20160121

REACTIONS (1)
  - Vomiting projectile [None]
